FAERS Safety Report 15538972 (Version 2)
Quarter: 2022Q1

REPORT INFORMATION
  Report Type: Report from Study
  Country: FR (occurrence: FR)
  Receive Date: 20181022
  Receipt Date: 20220204
  Transmission Date: 20220423
  Serious: Yes (Hospitalization, Other)
  Sender: FDA-Public Use
  Company Number: FR-SHIRE-FR201839666

PATIENT

DRUGS (8)
  1. ONCASPAR [Suspect]
     Active Substance: PEGASPARGASE
     Indication: Acute lymphocytic leukaemia
     Dosage: 1425 IU, QD
     Route: 042
     Dates: start: 20180831, end: 20180831
  2. DEXAMETHASONE [Suspect]
     Active Substance: DEXAMETHASONE
     Indication: Acute lymphocytic leukaemia
     Dosage: 17 MG, 1X/DAY:QD
     Route: 042
     Dates: start: 20180827, end: 20180917
  3. VINCRISTINE [Suspect]
     Active Substance: VINCRISTINE
     Indication: Acute lymphocytic leukaemia
     Dosage: 0.85 MG, 1X/DAY:QD
     Route: 042
     Dates: start: 20180827, end: 20180917
  4. METHOTREXATE [Suspect]
     Active Substance: METHOTREXATE
     Indication: Acute lymphocytic leukaemia
     Dosage: 12 MG, 1X/DAY:QD
     Route: 037
     Dates: start: 20180901, end: 20180912
  5. HYDROCORTISONE [Suspect]
     Active Substance: HYDROCORTISONE
     Indication: Acute lymphocytic leukaemia
     Dosage: 15 MG, 1X/DAY:QD
     Route: 037
     Dates: start: 20180901, end: 20180912
  6. CYTARABINE [Suspect]
     Active Substance: CYTARABINE
     Indication: Acute lymphocytic leukaemia
     Dosage: 30 MG, 1X/DAY:QD
     Route: 037
     Dates: start: 20180901, end: 20180912
  7. PREDNISOLONE [Suspect]
     Active Substance: PREDNISOLONE
     Indication: Acute lymphocytic leukaemia
     Dosage: 35 MG, 1X/DAY:QD
     Route: 048
     Dates: start: 20180827, end: 20180916
  8. BACTRIM [Concomitant]
     Active Substance: SULFAMETHOXAZOLE\TRIMETHOPRIM
     Indication: Infection prophylaxis

REACTIONS (3)
  - Mucosal inflammation [Recovered/Resolved]
  - Herpes simplex [Recovered/Resolved]
  - Febrile bone marrow aplasia [Recovered/Resolved]

NARRATIVE: CASE EVENT DATE: 20180922
